FAERS Safety Report 4992216-0 (Version None)
Quarter: 2006Q2

REPORT INFORMATION
  Report Type: 
  Country: None (occurrence: None)
  Receive Date: 20060502
  Receipt Date: 20060425
  Transmission Date: 20061013
  Serious: Yes (Life-Threatening, Hospitalization)
  Sender: FDA-Public Use
  Company Number: 224409

PATIENT
  Age: 81 Year
  Sex: Male

DRUGS (5)
  1. ACTIVASE [Suspect]
     Indication: ISCHAEMIC STROKE
     Dosage: 74.4 MG, INTRAVENOUS
     Route: 042
     Dates: start: 20060406
  2. ATIVAN [Concomitant]
  3. ANTIHYPERTENSIVE DRUG NOS (ANTIHYPERTENSIVE NOS) [Concomitant]
  4. SYNTHROID [Concomitant]
  5. MEDICATION (UNK INGREDIENT) [Concomitant]

REACTIONS (1)
  - ANGIONEUROTIC OEDEMA [None]
